FAERS Safety Report 11424645 (Version 1)
Quarter: 2015Q3

REPORT INFORMATION
  Report Type: Report from Study
  Country: US (occurrence: US)
  Receive Date: 20150827
  Receipt Date: 20150827
  Transmission Date: 20151125
  Serious: Yes (Hospitalization, Other)
  Sender: FDA-Public Use
  Company Number: US-ASTELLAS-2015US021501

PATIENT
  Sex: Female

DRUGS (3)
  1. ERLOTINIB [Suspect]
     Active Substance: ERLOTINIB
     Indication: LUNG NEOPLASM MALIGNANT
     Route: 048
  2. ERLOTINIB [Suspect]
     Active Substance: ERLOTINIB
     Indication: MALIGNANT RESPIRATORY TRACT NEOPLASM
     Route: 048
  3. ERLOTINIB [Suspect]
     Active Substance: ERLOTINIB
     Route: 048

REACTIONS (13)
  - Pericardial effusion [Unknown]
  - Weight decreased [Unknown]
  - Cough [Unknown]
  - Malaise [Unknown]
  - Adenocarcinoma [Unknown]
  - Depression [Unknown]
  - Diarrhoea [Unknown]
  - Pneumonia [Unknown]
  - Rash [Unknown]
  - Decreased appetite [Unknown]
  - Chest pain [Unknown]
  - Pulmonary mass [Unknown]
  - Anxiety [Unknown]
